FAERS Safety Report 19210710 (Version 1)
Quarter: 2021Q2

REPORT INFORMATION
  Report Type: Spontaneous
  Country: US (occurrence: US)
  Receive Date: 20210503
  Receipt Date: 20210503
  Transmission Date: 20210717
  Serious: Yes (Life-Threatening)
  Sender: FDA-Public Use
  Company Number: None

PATIENT
  Age: 59 Year
  Sex: Male
  Weight: 93.38 kg

DRUGS (7)
  1. LEVOTHYROXINE. [Concomitant]
     Active Substance: LEVOTHYROXINE
  2. SENNA [Concomitant]
     Active Substance: SENNA LEAF\SENNOSIDES\SENNOSIDES A AND B
  3. FLUDROCORTISONE [Concomitant]
     Active Substance: FLUDROCORTISONE
  4. CLOZAPINE. [Suspect]
     Active Substance: CLOZAPINE
     Dates: start: 20210226, end: 20210308
  5. FAMOTIDINE. [Concomitant]
     Active Substance: FAMOTIDINE
  6. ATORVASTATIN [Concomitant]
     Active Substance: ATORVASTATIN
  7. PFIZER?BIONTECH COVID?19 VACCINE [Suspect]
     Active Substance: TOZINAMERAN

REACTIONS (12)
  - Blood creatine phosphokinase increased [None]
  - Mental disorder [None]
  - Orthostatic intolerance [None]
  - Confusional state [None]
  - Muscle rigidity [None]
  - Oxygen saturation decreased [None]
  - Rhabdomyolysis [None]
  - COVID-19 immunisation [None]
  - Tachycardia [None]
  - Myocarditis [None]
  - Mental status changes [None]
  - Somnolence [None]

NARRATIVE: CASE EVENT DATE: 20210308
